FAERS Safety Report 7242813-7 (Version None)
Quarter: 2011Q1

REPORT INFORMATION
  Report Type: 
  Country: None (occurrence: None)
  Receive Date: 20110125
  Receipt Date: 20110117
  Transmission Date: 20110831
  Serious: Yes (Hospitalization)
  Sender: FDA-Public Use
  Company Number: US-B.I. PHARMACEUTICALS,INC./RIDGEFIELD-2011-BP-01433BP

PATIENT
  Age: 50 Year
  Sex: Male

DRUGS (1)
  1. AGGRENOX [Suspect]

REACTIONS (2)
  - ABSCESS JAW [None]
  - ACTIVATED PARTIAL THROMBOPLASTIN TIME PROLONGED [None]
